FAERS Safety Report 25342313 (Version 1)
Quarter: 2025Q2

REPORT INFORMATION
  Report Type: Spontaneous
  Country: US (occurrence: None)
  Receive Date: 20250520
  Receipt Date: 20250520
  Transmission Date: 20250717
  Serious: Yes (Disabling)
  Sender: FDA-CTU
  Company Number: None

PATIENT
  Age: 35 Year
  Sex: Female

DRUGS (1)
  1. ZYRTEC [Suspect]
     Active Substance: CETIRIZINE HYDROCHLORIDE
     Indication: Multiple allergies

REACTIONS (22)
  - Withdrawal syndrome [None]
  - Pruritus [None]
  - Burning sensation [None]
  - Urticaria [None]
  - Sneezing [None]
  - Nonspecific reaction [None]
  - Rhinorrhoea [None]
  - Dizziness [None]
  - Brain fog [None]
  - Fatigue [None]
  - Tremor [None]
  - Food craving [None]
  - Weight increased [None]
  - Acne [None]
  - Dry skin [None]
  - Breath odour [None]
  - Taste disorder [None]
  - Fatigue [None]
  - Hypersensitivity [None]
  - Tooth disorder [None]
  - Dry mouth [None]
  - Asthenia [None]
